FAERS Safety Report 6096370-1 (Version None)
Quarter: 2009Q1

REPORT INFORMATION
  Report Type: 
  Country: None (occurrence: None)
  Receive Date: 20090227
  Receipt Date: 20081124
  Transmission Date: 20090719
  Serious: No
  Sender: FDA-Public Use
  Company Number: A0758168A

PATIENT
  Age: 67 Year
  Sex: Female

DRUGS (1)
  1. LAMICTAL [Suspect]
     Indication: DEPRESSION
     Route: 048

REACTIONS (2)
  - DYSKINESIA [None]
  - ILL-DEFINED DISORDER [None]
